FAERS Safety Report 4814912-8 (Version None)
Quarter: 2005Q4

REPORT INFORMATION
  Report Type: 
  Country: None (occurrence: None)
  Receive Date: 20051028
  Receipt Date: 20050926
  Transmission Date: 20060501
  Serious: Yes (Other)
  Sender: FDA-Public Use
  Company Number: PHFR2005GB03183

PATIENT
  Age: 14 Year
  Sex: Male

DRUGS (2)
  1. CLOZARIL [Suspect]
     Indication: SCHIZOPHRENIA
     Dosage: 100MG/MANE 150MG/NOCTE
     Route: 048
     Dates: start: 20050908
  2. HYOSCINE HBR HYT [Concomitant]
     Indication: SALIVARY HYPERSECRETION
     Dosage: 300 MG, BID
     Route: 048
     Dates: start: 20050927

REACTIONS (6)
  - BODY TEMPERATURE INCREASED [None]
  - DRUG LEVEL INCREASED [None]
  - ELECTROCARDIOGRAM QT PROLONGED [None]
  - HEART RATE INCREASED [None]
  - SOMNOLENCE [None]
  - TACHYCARDIA [None]
